FAERS Safety Report 10344641 (Version 1)
Quarter: 2014Q3

REPORT INFORMATION
  Report Type: Spontaneous
  Country: US (occurrence: None)
  Receive Date: 20140723
  Receipt Date: 20140723
  Transmission Date: 20150326
  Serious: Yes (Death)
  Sender: FDA-Public Use
  Company Number: US-H14001-14-00243

PATIENT
  Age: 01 Year
  Sex: Female

DRUGS (2)
  1. HEPARIN [Suspect]
     Active Substance: HEPARIN SODIUM
     Indication: THROMBOSIS
  2. WARFARIN (WARFARIN) [Concomitant]
     Active Substance: WARFARIN

REACTIONS (5)
  - Flank pain [None]
  - Retroperitoneal haemorrhage [None]
  - Tumour haemorrhage [None]
  - Tumour thrombosis [None]
  - Hypotension [None]
